FAERS Safety Report 5601160-7 (Version None)
Quarter: 2008Q1

REPORT INFORMATION
  Report Type: 
  Country: None (occurrence: None)
  Receive Date: 20080118
  Receipt Date: 20080104
  Transmission Date: 20080703
  Serious: Yes (Other)
  Sender: FDA-Public Use
  Company Number: 002#8#2008-00011

PATIENT

DRUGS (1)
  1. GLYCOLAX [Suspect]
     Indication: CONSTIPATION
     Dosage: 1 IN 8 H,NASOGASTRIC

REACTIONS (2)
  - ACUTE ABDOMEN [None]
  - GASTROINTESTINAL HYPOMOTILITY [None]
